FAERS Safety Report 7499813-1 (Version None)
Quarter: 2011Q2

REPORT INFORMATION
  Report Type: 
  Country: None (occurrence: None)
  Receive Date: 20110524
  Receipt Date: 20110510
  Transmission Date: 20111010
  Serious: Yes (Death)
  Sender: FDA-Public Use
  Company Number: JP-BAYER-2011-011091

PATIENT
  Age: 60 Year
  Sex: Male
  Weight: 64 kg

DRUGS (29)
  1. AMOBAN [Concomitant]
     Dosage: DAILY DOSE 7.5 MG
     Route: 048
     Dates: start: 20100704, end: 20100801
  2. FERROUS CITRATE [Concomitant]
     Dosage: DAILY DOSE 100 MG
     Route: 048
     Dates: start: 20100817, end: 20100801
  3. BIOFERMIN [Concomitant]
     Dosage: DAILY DOSE 3 G
     Route: 048
     Dates: start: 20100901
  4. PURSENNID [Concomitant]
     Dosage: UNK
     Route: 048
     Dates: start: 20100918
  5. NEXAVAR [Suspect]
     Dosage: 400 MG, BID
     Route: 048
     Dates: start: 20100914, end: 20110104
  6. HERBAL PREPARATION [Concomitant]
     Dosage: UNK
     Route: 048
     Dates: start: 20100918
  7. LOXONIN [Concomitant]
     Dosage: DAILY DOSE 180 MG
     Route: 048
     Dates: start: 20101210
  8. LENDORMIN [Concomitant]
     Dosage: DAILY DOSE .75 MG
     Route: 048
     Dates: start: 20100806
  9. ALOSENN [Concomitant]
     Dosage: UNK
     Route: 048
     Dates: start: 20100918
  10. CALBLOCK [Concomitant]
     Dosage: DAILY DOSE 8 MG
     Route: 048
     Dates: start: 20101029
  11. VAGOSTIGMIN [Concomitant]
     Indication: ANAESTHESIA PROCEDURE
     Dosage: UNK
     Route: 042
     Dates: start: 20100830, end: 20100830
  12. NEXAVAR [Suspect]
     Indication: RENAL CELL CARCINOMA
     Dosage: 400 MG, BID
     Route: 048
     Dates: start: 20100703, end: 20100824
  13. SUMIFERON [Concomitant]
     Dosage: DAILY DOSE 3 MIU
     Route: 058
     Dates: start: 20101029
  14. TANATRIL [Concomitant]
     Dosage: DAILY DOSE 5 MG
     Route: 048
     Dates: start: 20101029
  15. PROPOFOL [Concomitant]
     Indication: ANAESTHESIA PROCEDURE
     Dosage: UNK
     Route: 042
     Dates: start: 20100830, end: 20100830
  16. FENTANYL [Concomitant]
     Indication: ANAESTHESIA PROCEDURE
     Dosage: UNK
     Route: 042
     Dates: start: 20100830, end: 20100830
  17. ULTIVA [Concomitant]
     Indication: ANAESTHESIA PROCEDURE
     Dosage: UNK
     Route: 042
     Dates: start: 20100830, end: 20100830
  18. EPHEDRIN [Concomitant]
     Indication: ANAESTHESIA PROCEDURE
     Dosage: UNK
     Route: 042
     Dates: start: 20100830, end: 20100830
  19. ATROPINE SULFATE [Concomitant]
     Indication: ANAESTHESIA PROCEDURE
     Dosage: UNK
     Route: 048
     Dates: start: 20100830, end: 20100830
  20. CINAL [ASCORBIC ACID,CALCIUM PANTOTHENATE] [Concomitant]
     Dosage: DAILY DOSE 600 MG
     Route: 048
     Dates: start: 20100817, end: 20100801
  21. CYTOTEC [Concomitant]
     Dosage: DAILY DOSE 300 ?G
     Route: 048
     Dates: start: 20101210
  22. MOBIC [Concomitant]
     Dosage: DAILY DOSE 10 MG
     Route: 048
     Dates: start: 20101029
  23. TAGAMET [Concomitant]
     Dosage: DAILY DOSE 200 MG
     Route: 048
     Dates: start: 20101029
  24. ROCURONIUM BROMIDE [Concomitant]
     Indication: ANAESTHESIA PROCEDURE
     Dosage: UNK
     Route: 042
     Dates: start: 20100830, end: 20100830
  25. ATVAGOREVERSE [Concomitant]
     Indication: ANAESTHESIA PROCEDURE
     Dosage: UNK
     Route: 042
     Dates: start: 20100830, end: 20100830
  26. RED BLOOD CELLS, CONCENTRATED [Concomitant]
     Dosage: DAILY DOSE 4 U
     Route: 042
     Dates: start: 20100830, end: 20100830
  27. MAGMITT [Concomitant]
     Dosage: DAILY DOSE 750 MG
     Route: 048
     Dates: start: 20100717
  28. OPALMON [Concomitant]
     Dosage: DAILY DOSE 15 ?G
     Route: 048
     Dates: start: 20101228
  29. RED BLOOD CELLS, CONCENTRATED [Concomitant]
     Dosage: DAILY DOSE 4 U
     Route: 042
     Dates: start: 20100801

REACTIONS (1)
  - SUDDEN DEATH [None]
